FAERS Safety Report 5136878-6 (Version None)
Quarter: 2006Q4

REPORT INFORMATION
  Report Type: 
  Country: None (occurrence: None)
  Receive Date: 20061023
  Receipt Date: 20061013
  Transmission Date: 20070319
  Serious: Yes (Life-Threatening)
  Sender: FDA-Public Use
  Company Number: CS-2006-030710

PATIENT
  Age: 78 Year
  Sex: Male

DRUGS (1)
  1. ULTRAVIST 300 [Suspect]
     Dosage: 100 ML, 1 DOSE, INTRAVENOUS
     Route: 042
     Dates: start: 20061002, end: 20061002

REACTIONS (4)
  - ARRHYTHMIA [None]
  - COUGH [None]
  - CYANOSIS [None]
  - SUFFOCATION FEELING [None]
